FAERS Safety Report 4622785-1 (Version None)
Quarter: 2005Q1

REPORT INFORMATION
  Report Type: 
  Country: None (occurrence: None)
  Receive Date: 20050328
  Receipt Date: 20050328
  Transmission Date: 20050727
  Serious: Yes (Hospitalization)
  Sender: FDA-Public Use
  Company Number: None

PATIENT
  Sex: Female
  Weight: 61.1902 kg

DRUGS (8)
  1. GEMCITABINE 100MG/ML [Suspect]
     Indication: PANCREATIC CARCINOMA
     Dosage: 1000MG/M2 + DAY 1 + 15 INTRAVENOUS
     Route: 042
     Dates: start: 20050223, end: 20050323
  2. CISPLATIN [Suspect]
     Indication: PANCREATIC CARCINOMA
     Dosage: 1000 MG/M2 + DAY 1 + 15 INTRAVENOUS
     Route: 042
     Dates: start: 20050223, end: 20050323
  3. BEVACIZUMAB 25 MG/ML    GENETECH [Suspect]
     Indication: PANCREATIC CARCINOMA
     Dosage: 10MG/KG DAY 1 + 15 INTRAVENOUS
     Route: 042
     Dates: start: 20050223, end: 20050323
  4. VANCOMYCIN [Concomitant]
  5. KYTRIL [Concomitant]
  6. LORAZEPAM [Concomitant]
  7. METHADONE HCL [Concomitant]
  8. TYLENOL (CAPLET) [Concomitant]

REACTIONS (3)
  - CLOSTRIDIAL INFECTION [None]
  - DIARRHOEA [None]
  - GASTROINTESTINAL HAEMORRHAGE [None]
